FAERS Safety Report 23694761 (Version 1)
Quarter: 2024Q2

REPORT INFORMATION
  Report Type: Spontaneous
  Country: JO (occurrence: JO)
  Receive Date: 20240402
  Receipt Date: 20240402
  Transmission Date: 20240716
  Serious: No
  Sender: FDA-Public Use
  Company Number: JO-ALKEM LABORATORIES LIMITED-JO-ALKEM-2023-08737

PATIENT

DRUGS (2)
  1. COLCHICINE [Suspect]
     Active Substance: COLCHICINE
     Indication: Arrhythmia prophylaxis
     Dosage: 1 MILLIGRAM, (12 TO 24 HOURS PRIOR TO SURGERY)
     Route: 065
  2. COLCHICINE [Suspect]
     Active Substance: COLCHICINE
     Indication: Postoperative care
     Dosage: 0.5 MILLIGRAM, QD,(IMMEDIATELY AFTER THEIR SURGERY) (UNTIL HOSPITAL DISCHARGE)

REACTIONS (1)
  - Diarrhoea [Unknown]
